FAERS Safety Report 6916296-8 (Version None)
Quarter: 2010Q3

REPORT INFORMATION
  Report Type: 
  Country: None (occurrence: None)
  Receive Date: 20100810
  Receipt Date: 20100729
  Transmission Date: 20110219
  Serious: Yes (Hospitalization)
  Sender: FDA-Public Use
  Company Number: JP-PFIZER INC-2010095529

PATIENT
  Age: 76 Year
  Sex: Female

DRUGS (3)
  1. CHAMPIX [Suspect]
     Indication: SMOKING CESSATION THERAPY
     Dosage: 0.5 MG, 1X/DAY
     Route: 048
     Dates: start: 20100218, end: 20100220
  2. CHAMPIX [Suspect]
     Dosage: 1 MG, 2X/DAY
     Route: 048
     Dates: start: 20100221, end: 20100224
  3. CHAMPIX [Suspect]
     Dosage: 2 MG, 2X/DAY
     Route: 048
     Dates: start: 20100225, end: 20100301

REACTIONS (2)
  - DECREASED APPETITE [None]
  - HYPONATRAEMIA [None]
